FAERS Safety Report 14323023 (Version 1)
Quarter: 2017Q4

REPORT INFORMATION
  Report Type: Spontaneous
  Country: IL (occurrence: IL)
  Receive Date: 20171226
  Receipt Date: 20171226
  Transmission Date: 20180321
  Serious: Yes (Other)
  Sender: FDA-Public Use
  Company Number: IL-ROCHE-2040341

PATIENT
  Age: 48 Year
  Sex: Female

DRUGS (5)
  1. ASPIRIN. [Concomitant]
     Active Substance: ASPIRIN
  2. VASODIP [Concomitant]
     Active Substance: LERCANIDIPINE HYDROCHLORIDE
  3. ACTEMRA [Suspect]
     Active Substance: TOCILIZUMAB
     Indication: TAKAYASU^S ARTERITIS
     Route: 042
     Dates: start: 201709
  4. PLAVIX [Concomitant]
     Active Substance: CLOPIDOGREL BISULFATE
  5. PREDNISONE. [Concomitant]
     Active Substance: PREDNISONE

REACTIONS (3)
  - Proctitis [Unknown]
  - Intentional product use issue [Unknown]
  - Off label use [Unknown]
